FAERS Safety Report 8984190 (Version 1)
Quarter: 2012Q4

REPORT INFORMATION
  Report Type: 
  Country: AU (occurrence: AU)
  Receive Date: 20121226
  Receipt Date: 20121226
  Transmission Date: 20130627
  Serious: Yes (Other)
  Sender: FDA-Public Use
  Company Number: AU-PFIZER INC-2012325200

PATIENT
  Sex: Female

DRUGS (1)
  1. DOSTINEX [Suspect]
     Indication: BLOOD PROLACTIN INCREASED
     Dosage: 500 ug, weekly

REACTIONS (4)
  - Candidiasis [Unknown]
  - Dyspnoea [Unknown]
  - Vulvovaginal swelling [Unknown]
  - Fatigue [Unknown]
